FAERS Safety Report 21622793 (Version 2)
Quarter: 2022Q4

REPORT INFORMATION
  Report Type: Report from Study
  Country: IN (occurrence: IN)
  Receive Date: 20221121
  Receipt Date: 20221215
  Transmission Date: 20230112
  Serious: Yes (Other)
  Sender: FDA-Public Use
  Company Number: IN-BRISTOL-MYERS SQUIBB COMPANY-BMS-2022-027865

PATIENT
  Age: 61 Year
  Sex: Male
  Weight: 81 kg

DRUGS (7)
  1. NIVOLUMAB [Suspect]
     Active Substance: NIVOLUMAB
     Indication: Non-small cell lung cancer
     Dosage: 2 WEEKLY
     Route: 042
     Dates: start: 20211123
  2. NIVOLUMAB [Suspect]
     Active Substance: NIVOLUMAB
     Dosage: UNK UNK, Q3WK
     Route: 042
  3. NIVOLUMAB [Suspect]
     Active Substance: NIVOLUMAB
     Route: 042
     Dates: start: 20211123
  4. NIVOLUMAB [Suspect]
     Active Substance: NIVOLUMAB
     Route: 042
     Dates: start: 20211123
  5. NIVOLUMAB [Suspect]
     Active Substance: NIVOLUMAB
     Route: 042
     Dates: start: 20211123
  6. NIVOLUMAB [Suspect]
     Active Substance: NIVOLUMAB
     Route: 042
     Dates: start: 20211123
  7. NIVOLUMAB [Suspect]
     Active Substance: NIVOLUMAB
     Route: 042

REACTIONS (18)
  - Renal function test abnormal [Unknown]
  - Blood glucose increased [Unknown]
  - Presyncope [Unknown]
  - Weight decreased [Unknown]
  - Localised infection [Unknown]
  - Laboratory test abnormal [Unknown]
  - Off label use [Unknown]
  - Nail infection [Unknown]
  - Lymph node pain [Unknown]
  - Swelling [Unknown]
  - Back pain [Unknown]
  - Bone disorder [Unknown]
  - Aspartate aminotransferase increased [Unknown]
  - Alanine aminotransferase increased [Unknown]
  - Purulent discharge [Recovered/Resolved]
  - Diabetic nephropathy [Unknown]
  - Pruritus [Unknown]
  - Retinopathy hypertensive [Unknown]
